FAERS Safety Report 17994011 (Version 2)
Quarter: 2020Q3

REPORT INFORMATION
  Report Type: Spontaneous
  Country: BG (occurrence: BG)
  Receive Date: 20200708
  Receipt Date: 20200715
  Transmission Date: 20201103
  Serious: Yes (Hospitalization, Other)
  Sender: FDA-Public Use
  Company Number: BG-MYLANLABS-2020M1060703

PATIENT
  Age: 10 Year
  Sex: Male

DRUGS (4)
  1. ZINNAT                             /00454603/ [Suspect]
     Active Substance: CEFUROXIME AXETIL
     Indication: LYMPHADENITIS
     Dosage: UNK
  2. DEXAMETHASONE. [Suspect]
     Active Substance: DEXAMETHASONE
     Indication: HAEMOPHAGOCYTIC LYMPHOHISTIOCYTOSIS
     Dosage: UNK
  3. METHYLPREDNISOLONE. [Suspect]
     Active Substance: METHYLPREDNISOLONE
     Indication: HAEMOPHAGOCYTIC LYMPHOHISTIOCYTOSIS
     Dosage: UNK UNK, QD
     Route: 042
  4. KLACID                             /00984601/ [Concomitant]
     Active Substance: CLARITHROMYCIN
     Indication: LYMPHADENITIS
     Dosage: UNK

REACTIONS (18)
  - Drug hypersensitivity [Unknown]
  - Swelling of eyelid [Recovering/Resolving]
  - Rash macular [Recovering/Resolving]
  - Peripheral swelling [Recovering/Resolving]
  - Swelling face [Recovering/Resolving]
  - Inflammation [Recovering/Resolving]
  - Juvenile idiopathic arthritis [Unknown]
  - Urticaria [Recovering/Resolving]
  - Lymphadenopathy [Recovering/Resolving]
  - Neutrophilia [Unknown]
  - Anaemia [Unknown]
  - Haemophagocytic lymphohistiocytosis [Recovering/Resolving]
  - Ear swelling [Recovering/Resolving]
  - Rash pruritic [Recovering/Resolving]
  - Off label use [Unknown]
  - Hepatosplenomegaly [Recovering/Resolving]
  - Rash [Recovering/Resolving]
  - Pyrexia [Recovering/Resolving]
